FAERS Safety Report 20723377 (Version 4)
Quarter: 2022Q3

REPORT INFORMATION
  Report Type: Spontaneous
  Country: PT (occurrence: PT)
  Receive Date: 20220419
  Receipt Date: 20220926
  Transmission Date: 20221027
  Serious: Yes (Life-Threatening, Hospitalization, Other)
  Sender: FDA-Public Use
  Company Number: PT-MLMSERVICE-20220330-3466067-1

PATIENT

DRUGS (2)
  1. METFORMIN [Suspect]
     Active Substance: METFORMIN HYDROCHLORIDE
     Indication: Diabetes mellitus
     Dosage: 1 MILLIGRAM, TID
     Route: 048
  2. ACYCLOVIR [Suspect]
     Active Substance: ACYCLOVIR
     Indication: Product used for unknown indication
     Dosage: UNK
     Route: 065

REACTIONS (12)
  - Acute kidney injury [Not Recovered/Not Resolved]
  - Distributive shock [Recovered/Resolved]
  - Myocardial necrosis [Unknown]
  - Lactic acidosis [Recovered/Resolved]
  - Left ventricular dysfunction [Unknown]
  - Renal impairment [Not Recovered/Not Resolved]
  - Normocytic anaemia [Not Recovered/Not Resolved]
  - Leukocytosis [Unknown]
  - Hyperkalaemia [Unknown]
  - Plasma cell myeloma [Unknown]
  - Bone lesion [Unknown]
  - Anaemia [Not Recovered/Not Resolved]
